FAERS Safety Report 9671257 (Version 1)
Quarter: 2013Q4

REPORT INFORMATION
  Report Type: Spontaneous
  Country: US (occurrence: None)
  Receive Date: 20131105
  Receipt Date: 20131105
  Transmission Date: 20140711
  Serious: Yes (Disabling, Other)
  Sender: FDA-Public Use
  Company Number: None

PATIENT
  Age: 42 Year
  Sex: Male

DRUGS (2)
  1. PROSCAR [Suspect]
     Indication: PROPHYLAXIS
     Route: 048
     Dates: start: 20131030, end: 20131031
  2. PROSCAR [Suspect]
     Indication: ALOPECIA
     Route: 048
     Dates: start: 20131030, end: 20131031

REACTIONS (2)
  - Genital hypoaesthesia [None]
  - Erectile dysfunction [None]
